FAERS Safety Report 14761366 (Version 5)
Quarter: 2018Q3

REPORT INFORMATION
  Report Type: Report from Study
  Country: FI (occurrence: FI)
  Receive Date: 20180415
  Receipt Date: 20180904
  Transmission Date: 20181010
  Serious: Yes (Hospitalization)
  Sender: FDA-Public Use
  Company Number: PHHY2018FI064240

PATIENT
  Age: 53 Year
  Sex: Female

DRUGS (3)
  1. GILENYA [Suspect]
     Active Substance: FINGOLIMOD HYDROCHLORIDE
     Indication: MULTIPLE SCLEROSIS
     Dosage: 1 DF(0.5MG), QD (MORNING)
     Route: 048
     Dates: start: 201312
  2. CARDACE [Concomitant]
     Active Substance: RAMIPRIL
     Indication: PRODUCT USED FOR UNKNOWN INDICATION
     Dosage: 2 DF, QD (IN THE MORNING AND THE EVENING)
     Route: 065
  3. AMLODIPIN ORION [Concomitant]
     Indication: PRODUCT USED FOR UNKNOWN INDICATION
     Dosage: 5 MG, QD
     Route: 065

REACTIONS (6)
  - Feeling abnormal [Unknown]
  - Quality of life decreased [Not Recovered/Not Resolved]
  - White blood cell count abnormal [Unknown]
  - Thrombocytopenia [Unknown]
  - Epistaxis [Unknown]
  - Petechiae [Recovered/Resolved with Sequelae]

NARRATIVE: CASE EVENT DATE: 201804
